FAERS Safety Report 12788422 (Version 3)
Quarter: 2016Q4

REPORT INFORMATION
  Report Type: Spontaneous
  Country: JP (occurrence: JP)
  Receive Date: 20160928
  Receipt Date: 20161104
  Transmission Date: 20170207
  Serious: Yes (Life-Threatening, Hospitalization, Other)
  Sender: FDA-Public Use
  Company Number: JP-SA-2016SA176973

PATIENT
  Age: 79 Year
  Sex: Male

DRUGS (2)
  1. CLOPIDOGREL BISULFATE. [Suspect]
     Active Substance: CLOPIDOGREL BISULFATE
     Indication: ANTIPLATELET THERAPY
     Route: 065
  2. ASPIRIN. [Suspect]
     Active Substance: ASPIRIN
     Indication: ANTIPLATELET THERAPY
     Route: 065

REACTIONS (7)
  - Haematoma [Unknown]
  - Mouth haemorrhage [Unknown]
  - Oropharyngeal swelling [Recovered/Resolved]
  - Respiratory rate increased [Recovered/Resolved]
  - Swollen tongue [Recovered/Resolved]
  - Upper airway obstruction [Recovered/Resolved]
  - Oxygen saturation decreased [Recovered/Resolved]
